FAERS Safety Report 4336460-4 (Version None)
Quarter: 2004Q2

REPORT INFORMATION
  Report Type: 
  Country: None (occurrence: None)
  Receive Date: 20040407
  Receipt Date: 20040211
  Transmission Date: 20050107
  Serious: Yes (Other)
  Sender: FDA-Public Use
  Company Number: 200401066

PATIENT
  Age: 60 Year
  Sex: Female

DRUGS (4)
  1. BOTOX COSMETIC [Suspect]
     Indication: SKIN WRINKLING
     Dosage: 35 UNITS PRN IM
     Route: 030
     Dates: start: 20020201, end: 20040206
  2. HORMONE REPLACEMENTS [Concomitant]
  3. CALCIUM [Concomitant]
  4. VITAMINS NOS [Concomitant]

REACTIONS (7)
  - BALANCE DISORDER [None]
  - BLOOD POTASSIUM DECREASED [None]
  - DIZZINESS [None]
  - FEELING ABNORMAL [None]
  - MEMORY IMPAIRMENT [None]
  - THINKING ABNORMAL [None]
  - TRANSIENT ISCHAEMIC ATTACK [None]
